FAERS Safety Report 8707590 (Version 2)
Quarter: 2013Q4

REPORT INFORMATION
  Report Type: Spontaneous
  Country: US (occurrence: US)
  Receive Date: 20120805
  Receipt Date: 20131031
  Transmission Date: 20140711
  Serious: No
  Sender: FDA-Public Use
  Company Number: US-009507513-2012SP024824

PATIENT
  Age: 42 Year
  Sex: Female
  Weight: 57.15 kg

DRUGS (2)
  1. CLARITIN-D [Suspect]
     Indication: HYPERSENSITIVITY
     Dosage: 5 MG, Q12H
     Route: 048
     Dates: start: 20120315, end: 20120318
  2. CLARITIN-D [Suspect]
     Indication: SEASONAL ALLERGY

REACTIONS (1)
  - Drug effect decreased [Not Recovered/Not Resolved]
